FAERS Safety Report 11928925 (Version 1)
Quarter: 2016Q1

REPORT INFORMATION
  Report Type: Spontaneous
  Country: US (occurrence: US)
  Receive Date: 20160120
  Receipt Date: 20160120
  Transmission Date: 20160526
  Serious: No
  Sender: FDA-Public Use
  Company Number: US-ASTRAZENECA-2016SE02603

PATIENT
  Sex: Female

DRUGS (1)
  1. NEXIUM [Suspect]
     Active Substance: ESOMEPRAZOLE MAGNESIUM
     Dosage: 20MG,2 DF
     Route: 048

REACTIONS (3)
  - Oesophageal pain [Unknown]
  - Abdominal hernia [Unknown]
  - Drug ineffective [Unknown]
